FAERS Safety Report 7937892-5 (Version None)
Quarter: 2011Q4

REPORT INFORMATION
  Report Type: 
  Country: None (occurrence: None)
  Receive Date: 20111123
  Receipt Date: 20111122
  Transmission Date: 20120403
  Serious: Yes (Other)
  Sender: FDA-Public Use
  Company Number: US-PFIZER INC-2011286065

PATIENT
  Sex: Female
  Weight: 77.1 kg

DRUGS (4)
  1. IBUPROFEN [Concomitant]
     Indication: PAIN
     Dosage: 800 MG
  2. WELLBUTRIN [Concomitant]
     Indication: DEPRESSION
     Dosage: 450 MG, DAILY
  3. LYRICA [Suspect]
     Dosage: 75 MG, 3X/DAY
     Route: 048
     Dates: start: 20110101, end: 20111118
  4. LYRICA [Suspect]
     Indication: FIBROMYALGIA
     Dosage: 75 MG, 2X/DAY
     Route: 048
     Dates: start: 20110101, end: 20110101

REACTIONS (3)
  - WITHDRAWAL SYNDROME [None]
  - CHEST DISCOMFORT [None]
  - FIBROMYALGIA [None]
